FAERS Safety Report 19128937 (Version 2)
Quarter: 2021Q3

REPORT INFORMATION
  Report Type: Report from Study
  Country: US (occurrence: US)
  Receive Date: 20210413
  Receipt Date: 20210924
  Transmission Date: 20211014
  Serious: No
  Sender: FDA-Public Use
  Company Number: US-TAKEDA-2021TUS021674

PATIENT
  Sex: Male
  Weight: 88 kg

DRUGS (86)
  1. GAMMAGARD S/D [Suspect]
     Active Substance: HUMAN IMMUNOGLOBULIN G
     Indication: SELECTIVE IGG SUBCLASS DEFICIENCY
  2. GAMMAGARD S/D [Suspect]
     Active Substance: HUMAN IMMUNOGLOBULIN G
     Indication: AMINO ACID METABOLISM DISORDER
  3. ACETAMINOPHEN. [Concomitant]
     Active Substance: ACETAMINOPHEN
     Route: 065
  4. CYMBALTA [Concomitant]
     Active Substance: DULOXETINE HYDROCHLORIDE
     Route: 065
  5. NASONEX [Concomitant]
     Active Substance: MOMETASONE FUROATE
     Route: 065
  6. LOVAZA [Concomitant]
     Active Substance: OMEGA-3-ACID ETHYL ESTERS
     Route: 065
  7. TETRIX [Concomitant]
     Route: 065
  8. MEMANTINE. [Concomitant]
     Active Substance: MEMANTINE
     Route: 065
  9. LEVOTHYROXINE. [Concomitant]
     Active Substance: LEVOTHYROXINE
     Route: 065
  10. SEBUDERM [Concomitant]
     Route: 065
  11. DIPHENHYDRAMINE. [Concomitant]
     Active Substance: DIPHENHYDRAMINE
     Route: 065
  12. ANDROGEL [Concomitant]
     Active Substance: TESTOSTERONE
     Route: 065
  13. REXULTI [Concomitant]
     Active Substance: BREXPIPRAZOLE
     Route: 065
  14. EMTRIVA [Concomitant]
     Active Substance: EMTRICITABINE
     Route: 065
  15. PREVIDENT [Concomitant]
     Active Substance: SODIUM FLUORIDE
     Route: 065
  16. NYSTATIN/TRIAMCINOLONE [Concomitant]
     Active Substance: NYSTATIN\TRIAMCINOLONE
     Route: 065
  17. HYDROCHLOROTHIAZIDE. [Concomitant]
     Active Substance: HYDROCHLOROTHIAZIDE
     Route: 065
  18. ASPIRIN. [Concomitant]
     Active Substance: ASPIRIN
     Route: 065
  19. SILDENAFIL CITRATE. [Concomitant]
     Active Substance: SILDENAFIL CITRATE
     Route: 065
  20. NORMAL SALINE [Concomitant]
     Active Substance: SODIUM CHLORIDE
     Route: 065
  21. SODIUM CHLORIDE. [Concomitant]
     Active Substance: SODIUM CHLORIDE
     Route: 065
  22. SINGULAIR [Concomitant]
     Active Substance: MONTELUKAST SODIUM
     Route: 065
  23. RESTASIS [Concomitant]
     Active Substance: CYCLOSPORINE
     Route: 065
  24. NORVIR [Concomitant]
     Active Substance: RITONAVIR
     Route: 065
  25. CLARINEX [Concomitant]
     Active Substance: DESLORATADINE
     Route: 065
  26. SEROSTIM [Concomitant]
     Active Substance: SOMATROPIN
     Route: 065
  27. CAPHOSOL [Concomitant]
     Active Substance: CALCIUM CHLORIDE\SODIUM CHLORIDE\SODIUM PHOSPHATE, DIBASIC, ANHYDROUS\SODIUM PHOSPHATE, MONOBASIC, ANHYDROUS
     Route: 065
  28. FLUDROCORTISONE ACETATE. [Concomitant]
     Active Substance: FLUDROCORTISONE ACETATE
     Route: 065
  29. K?PHOS [Concomitant]
     Active Substance: POTASSIUM PHOSPHATE, MONOBASIC
     Route: 065
  30. METFORMIN [Concomitant]
     Active Substance: METFORMIN HYDROCHLORIDE
     Route: 065
  31. XIFAXAN [Concomitant]
     Active Substance: RIFAXIMIN
     Route: 065
  32. TAMSULOSIN [Concomitant]
     Active Substance: TAMSULOSIN
     Route: 065
  33. KERYDIN [Concomitant]
     Active Substance: TAVABOROLE
     Route: 065
  34. GAMMAGARD [Concomitant]
     Active Substance: HUMAN IMMUNOGLOBULIN G
     Route: 065
  35. GAMMAGARD S/D [Suspect]
     Active Substance: HUMAN IMMUNOGLOBULIN G
     Indication: HYPERGAMMAGLOBULINAEMIA
     Dosage: 40 GRAM, 1/WEEK
     Route: 042
     Dates: start: 20190814
  36. CREON [Concomitant]
     Active Substance: PANCRELIPASE AMYLASE\PANCRELIPASE LIPASE\PANCRELIPASE PROTEASE
     Route: 065
  37. JUBLIA [Concomitant]
     Active Substance: EFINACONAZOLE
     Dosage: UNK
     Route: 065
  38. NEVIRAPINE. [Concomitant]
     Active Substance: NEVIRAPINE
     Route: 065
  39. AMPHETAMINE SULFATE. [Concomitant]
     Active Substance: AMPHETAMINE SULFATE
     Route: 065
  40. FINASTERIDE. [Concomitant]
     Active Substance: FINASTERIDE
     Route: 065
  41. MUPIROCIN. [Concomitant]
     Active Substance: MUPIROCIN
     Route: 065
  42. GAMMAGARD S/D [Suspect]
     Active Substance: HUMAN IMMUNOGLOBULIN G
     Indication: HIV INFECTION
  43. HUMALOG [Concomitant]
     Active Substance: INSULIN LISPRO
     Route: 065
  44. XIIDRA [Concomitant]
     Active Substance: LIFITEGRAST
     Route: 065
  45. AMLODIPINE [Concomitant]
     Active Substance: AMLODIPINE BESYLATE
     Route: 065
  46. LOPROX [Concomitant]
     Active Substance: CICLOPIROX\CICLOPIROX OLAMINE
     Route: 065
  47. PROVIGIL [Concomitant]
     Active Substance: MODAFINIL
     Route: 065
  48. VASOTEC [Concomitant]
     Active Substance: ENALAPRIL MALEATE
     Route: 065
  49. AZELASTINE;FLUTICASONE [Concomitant]
     Active Substance: AZELASTINE HYDROCHLORIDE\FLUTICASONE PROPIONATE
     Route: 065
  50. SILDENAFIL. [Concomitant]
     Active Substance: SILDENAFIL
     Route: 065
  51. GLIMEPIRIDE. [Concomitant]
     Active Substance: GLIMEPIRIDE
     Route: 065
  52. MAGNESIUM OXIDE. [Concomitant]
     Active Substance: MAGNESIUM OXIDE
     Route: 065
  53. GAMMAGARD S/D [Suspect]
     Active Substance: HUMAN IMMUNOGLOBULIN G
     Indication: HIV INFECTION
  54. LIDOCAINE. [Concomitant]
     Active Substance: LIDOCAINE
     Route: 065
  55. EPINEPHRINE. [Concomitant]
     Active Substance: EPINEPHRINE
     Route: 065
  56. LMX [Concomitant]
     Route: 065
  57. HUMULIN N [Concomitant]
     Active Substance: INSULIN HUMAN
     Route: 065
  58. RETACRIT [Concomitant]
     Active Substance: EPOETIN ALFA-EPBX
     Route: 065
  59. PROMACTA [Concomitant]
     Active Substance: ELTROMBOPAG OLAMINE
     Route: 065
  60. OXAZEPAM. [Concomitant]
     Active Substance: OXAZEPAM
     Route: 065
  61. EUCRISA [Concomitant]
     Active Substance: CRISABOROLE
     Route: 065
  62. CRESTOR [Concomitant]
     Active Substance: ROSUVASTATIN CALCIUM
     Dosage: UNK
     Route: 065
  63. MYRBETRIQ [Concomitant]
     Active Substance: MIRABEGRON
     Route: 065
  64. ERYTHROMYCIN. [Concomitant]
     Active Substance: ERYTHROMYCIN
     Route: 065
  65. MYTESI [Concomitant]
     Active Substance: CROFELEMER
     Route: 065
  66. GAMMAGARD S/D [Suspect]
     Active Substance: HUMAN IMMUNOGLOBULIN G
     Indication: HYPERGAMMAGLOBULINAEMIA
     Dosage: 40 GRAM, 1/WEEK
     Route: 042
     Dates: start: 20190814
  67. GAMMAGARD S/D [Suspect]
     Active Substance: HUMAN IMMUNOGLOBULIN G
     Indication: CHRONIC INFLAMMATORY DEMYELINATING POLYRADICULONEUROPATHY
  68. GAMMAGARD S/D [Suspect]
     Active Substance: HUMAN IMMUNOGLOBULIN G
     Indication: SELECTIVE IGG SUBCLASS DEFICIENCY
  69. GAMMAGARD S/D [Suspect]
     Active Substance: HUMAN IMMUNOGLOBULIN G
     Indication: AMINO ACID METABOLISM DISORDER
  70. SALINE [SODIUM CHLORIDE] [Concomitant]
     Active Substance: SODIUM CHLORIDE
     Indication: PRODUCT USED FOR UNKNOWN INDICATION
     Route: 065
  71. HEPARIN [Concomitant]
     Active Substance: HEPARIN SODIUM
     Route: 065
  72. DIOVAN [Concomitant]
     Active Substance: VALSARTAN
     Route: 065
  73. SELZENTRY [Concomitant]
     Active Substance: MARAVIROC
     Route: 065
  74. TIVICAY [Concomitant]
     Active Substance: DOLUTEGRAVIR SODIUM
     Route: 065
  75. PREZISTA [Concomitant]
     Active Substance: DARUNAVIR ETHANOLATE
     Route: 065
  76. ENTYVIO [Concomitant]
     Active Substance: VEDOLIZUMAB
     Route: 065
  77. GRANIX [Concomitant]
     Active Substance: TBO-FILGRASTIM
     Route: 065
  78. GABAPENTIN. [Concomitant]
     Active Substance: GABAPENTIN
     Route: 065
  79. ATENOLOL. [Concomitant]
     Active Substance: ATENOLOL
     Route: 065
  80. GAMMAGARD S/D [Suspect]
     Active Substance: HUMAN IMMUNOGLOBULIN G
     Indication: CHRONIC INFLAMMATORY DEMYELINATING POLYRADICULONEUROPATHY
  81. LEVOCARNITINE. [Concomitant]
     Active Substance: LEVOCARNITINE
     Route: 065
  82. VALTREX [Concomitant]
     Active Substance: VALACYCLOVIR HYDROCHLORIDE
     Route: 065
  83. NIZORAL A?D [Concomitant]
     Active Substance: KETOCONAZOLE
     Route: 065
  84. OMEPRAZOLE. [Concomitant]
     Active Substance: OMEPRAZOLE
     Route: 065
  85. CALCITRIOL. [Concomitant]
     Active Substance: CALCITRIOL
     Route: 065
  86. DIGITEK [Concomitant]
     Active Substance: DIGOXIN
     Route: 065

REACTIONS (2)
  - Renal disorder [Unknown]
  - Hypertension [Unknown]
